FAERS Safety Report 5314432-0 (Version None)
Quarter: 2007Q2

REPORT INFORMATION
  Report Type: 
  Country: None (occurrence: None)
  Receive Date: 20070502
  Receipt Date: 20070424
  Transmission Date: 20071010
  Serious: Yes (Hospitalization)
  Sender: FDA-Public Use
  Company Number: JP-ELI_LILLY_AND_COMPANY-JP200704002825

PATIENT
  Age: 41 Year
  Sex: Female

DRUGS (7)
  1. ZYPREXA [Suspect]
     Indication: AFFECT LABILITY
     Dosage: 5 MG, DAILY (1/D)
     Route: 048
     Dates: start: 20070313, end: 20070413
  2. TETRAMIDE [Concomitant]
     Route: 065
  3. PAXIL [Concomitant]
     Route: 065
  4. CONTOMIN [Concomitant]
     Route: 065
  5. MYSLEE [Concomitant]
  6. NITRAZEPAM [Concomitant]
     Route: 065
  7. DORAL [Concomitant]
     Route: 065

REACTIONS (3)
  - HAEMATOCRIT DECREASED [None]
  - HAEMOGLOBIN DECREASED [None]
  - RED BLOOD CELL COUNT DECREASED [None]
